FAERS Safety Report 8111173-1 (Version None)
Quarter: 2012Q1

REPORT INFORMATION
  Report Type: 
  Country: None (occurrence: None)
  Receive Date: 20120203
  Receipt Date: 20110601
  Transmission Date: 20120608
  Serious: Yes (Other)
  Sender: FDA-Public Use
  Company Number: US-GLAXOSMITHKLINE-A0929881A

PATIENT
  Age: 36 Year
  Sex: Male

DRUGS (2)
  1. IBUPROFEN [Concomitant]
  2. LAMICTAL [Suspect]
     Indication: CONVULSION
     Dosage: 25MG PER DAY
     Route: 048
     Dates: start: 20090501

REACTIONS (1)
  - GRAND MAL CONVULSION [None]
